FAERS Safety Report 5108509-2 (Version None)
Quarter: 2006Q3

REPORT INFORMATION
  Report Type: 
  Country: None (occurrence: None)
  Receive Date: 20060914
  Receipt Date: 20060912
  Transmission Date: 20061208
  Serious: Yes (Hospitalization)
  Sender: FDA-Public Use
  Company Number: TCI2006A03628

PATIENT
  Age: 57 Year
  Sex: Male

DRUGS (1)
  1. LANSAP 400 (LANSOPRAZOLE, CLARITHROMYCIN, AMOXICILLIN) [Suspect]
     Indication: HELICOBACTER INFECTION
     Dosage: 1 CARD (0.5 CARD, 2 IN 1 D)
     Route: 048
     Dates: start: 20060117, end: 20060118

REACTIONS (5)
  - BLISTER [None]
  - DRUG ERUPTION [None]
  - ERYTHEMA [None]
  - RASH ERYTHEMATOUS [None]
  - SKIN TEST POSITIVE [None]
